FAERS Safety Report 5006399-X (Version None)
Quarter: 2006Q2

REPORT INFORMATION
  Report Type: 
  Country: None (occurrence: None)
  Receive Date: 20060519
  Receipt Date: 20060509
  Transmission Date: 20061013
  Serious: Yes (Death)
  Sender: FDA-Public Use
  Company Number: US-SANOFI-SYNTHELABO-A03200602933

PATIENT
  Sex: Male

DRUGS (4)
  1. PLAVIX [Suspect]
     Indication: CORONARY ARTERIAL STENT INSERTION
     Dosage: UNK
     Route: 048
     Dates: start: 20050601
  2. LANTUS [Concomitant]
     Dosage: UNK
     Route: 058
  3. LASIX [Concomitant]
     Dosage: UNK
     Route: 065
  4. CLONAZEPAM [Concomitant]
     Dosage: UNK
     Route: 048

REACTIONS (4)
  - DEATH [None]
  - MYOCARDIAL INFARCTION [None]
  - RENAL FAILURE [None]
  - URINARY RETENTION [None]
